FAERS Safety Report 9176991 (Version 1)
Quarter: 2013Q1

REPORT INFORMATION
  Report Type: Spontaneous
  Country: US (occurrence: None)
  Receive Date: 20130320
  Receipt Date: 20130320
  Transmission Date: 20140127
  Serious: No
  Sender: FDA-Public Use
  Company Number: None

PATIENT
  Age: 69 Year
  Sex: Male
  Weight: 108.86 kg

DRUGS (2)
  1. LOSARTAN [Suspect]
     Indication: HYPERTENSION
     Route: 048
  2. LOSARTAN [Suspect]
     Indication: CORONARY ARTERY DISEASE
     Route: 048

REACTIONS (6)
  - Local swelling [None]
  - Erythema [None]
  - Pruritus generalised [None]
  - Rash [None]
  - Insomnia [None]
  - Dyspnoea [None]
